FAERS Safety Report 15685058 (Version 1)
Quarter: 2018Q4

REPORT INFORMATION
  Report Type: Spontaneous
  Country: US (occurrence: US)
  Receive Date: 20181204
  Receipt Date: 20181204
  Transmission Date: 20190205
  Serious: Yes (Other)
  Sender: FDA-Public Use
  Company Number: US-VALIDUS PHARMACEUTICALS LLC-US-2018VAL000988

PATIENT
  Age: 67 Year
  Sex: Male

DRUGS (3)
  1. AMBRISENTAN [Suspect]
     Active Substance: AMBRISENTAN
     Indication: PRODUCT USED FOR UNKNOWN INDICATION
     Dosage: 5 MG, UNK
     Dates: start: 20171110
  2. LASIX [Suspect]
     Active Substance: FUROSEMIDE
     Indication: PRODUCT USED FOR UNKNOWN INDICATION
     Dosage: 20 MG, UNK
  3. LASIX [Suspect]
     Active Substance: FUROSEMIDE
     Dosage: 40 MG, UNK

REACTIONS (20)
  - Oedema [Not Recovered/Not Resolved]
  - Abdominal rigidity [Not Recovered/Not Resolved]
  - Fatigue [Not Recovered/Not Resolved]
  - Headache [Not Recovered/Not Resolved]
  - Dizziness [Not Recovered/Not Resolved]
  - Oedema peripheral [Not Recovered/Not Resolved]
  - Abdominal discomfort [Not Recovered/Not Resolved]
  - Urine output decreased [Not Recovered/Not Resolved]
  - Thirst [Not Recovered/Not Resolved]
  - Joint swelling [Not Recovered/Not Resolved]
  - Sensory disturbance [Not Recovered/Not Resolved]
  - Weight fluctuation [Not Recovered/Not Resolved]
  - Renal disorder [Unknown]
  - Flushing [Not Recovered/Not Resolved]
  - Palpitations [Not Recovered/Not Resolved]
  - Exercise tolerance decreased [Not Recovered/Not Resolved]
  - Dry mouth [Not Recovered/Not Resolved]
  - Lethargy [Not Recovered/Not Resolved]
  - Abdominal distension [Not Recovered/Not Resolved]
  - Epistaxis [Unknown]

NARRATIVE: CASE EVENT DATE: 201711
